FAERS Safety Report 9926493 (Version 1)
Quarter: 2014Q1

REPORT INFORMATION
  Report Type: Spontaneous
  Country: US (occurrence: US)
  Receive Date: 20140226
  Receipt Date: 20140226
  Transmission Date: 20141002
  Serious: No
  Sender: FDA-Public Use
  Company Number: US-AMGEN-USASP2013071491

PATIENT
  Age: 49 Year
  Sex: Female

DRUGS (4)
  1. ENBREL [Suspect]
     Indication: RHEUMATOID ARTHRITIS
     Dosage: 50 MG, QWK
     Route: 065
     Dates: start: 20130124, end: 20130804
  2. ENBREL [Suspect]
     Indication: PSORIASIS
  3. HUMIRA [Suspect]
     Indication: PRODUCT USED FOR UNKNOWN INDICATION
     Dosage: 40 MG, EVERY 14 DAYS
     Route: 065
     Dates: start: 201308
  4. METHOTREXATE [Concomitant]
     Dosage: 7.5 MG, QWK
     Dates: start: 201308, end: 201308

REACTIONS (2)
  - Arthritis [Not Recovered/Not Resolved]
  - Malaise [Unknown]
